FAERS Safety Report 10193403 (Version 1)
Quarter: 2014Q2

REPORT INFORMATION
  Report Type: Spontaneous
  Country: US (occurrence: US)
  Receive Date: 20140524
  Receipt Date: 20140524
  Transmission Date: 20141212
  Serious: No
  Sender: FDA-Public Use
  Company Number: US-SA-2013SA127931

PATIENT
  Age: 59 Year
  Sex: Female

DRUGS (2)
  1. LANTUS [Suspect]
     Dosage: PATIENT TAKES 30-35 UNITS, DAILY
     Route: 051
     Dates: start: 20131121
  2. HUMULIN [Concomitant]
     Route: 065

REACTIONS (6)
  - Vomiting [Unknown]
  - Nausea [Unknown]
  - Headache [Unknown]
  - Blood glucose increased [Unknown]
  - Malaise [Unknown]
  - Blood glucose decreased [Unknown]
